FAERS Safety Report 5419071-9 (Version None)
Quarter: 2007Q3

REPORT INFORMATION
  Report Type: 
  Country: None (occurrence: None)
  Receive Date: 20070820
  Receipt Date: 20070810
  Transmission Date: 20080115
  Serious: Yes (Hospitalization)
  Sender: FDA-Public Use
  Company Number: PHBS2007JP12922

PATIENT
  Age: 61 Year
  Sex: Male

DRUGS (1)
  1. NATEGLINIDE [Suspect]
     Indication: DIABETES MELLITUS
     Dosage: 270 MG, UNK

REACTIONS (17)
  - ALTERED STATE OF CONSCIOUSNESS [None]
  - BLOOD ALBUMIN DECREASED [None]
  - BLOOD PRESSURE DECREASED [None]
  - BODY MASS INDEX DECREASED [None]
  - BODY TEMPERATURE DECREASED [None]
  - DECREASED APPETITE [None]
  - DIARRHOEA [None]
  - ELECTROCARDIOGRAM ABNORMAL [None]
  - GLYCOSYLATED HAEMOGLOBIN INCREASED [None]
  - HEART RATE DECREASED [None]
  - HYPERGLYCAEMIA [None]
  - HYPOGLYCAEMIA [None]
  - IMPAIRED INSULIN SECRETION [None]
  - PANCREATIC ATROPHY [None]
  - PANCYTOPENIA [None]
  - RESPIRATORY RATE DECREASED [None]
  - TYPE 1 DIABETES MELLITUS [None]
